FAERS Safety Report 9252576 (Version 1)
Quarter: 2013Q2

REPORT INFORMATION
  Report Type: Spontaneous
  Country: US (occurrence: US)
  Receive Date: 20130424
  Receipt Date: 20130424
  Transmission Date: 20140414
  Serious: No
  Sender: FDA-Public Use
  Company Number: US-ASTRAZENECA-2013SE23664

PATIENT
  Sex: Male

DRUGS (5)
  1. BRILINTA [Suspect]
     Indication: STENT PLACEMENT
     Route: 048
     Dates: start: 20130326, end: 20130327
  2. PLAVIX [Suspect]
     Route: 048
  3. PRADAXA [Concomitant]
  4. ASPIRIN [Concomitant]
     Indication: STENT PLACEMENT
  5. BETA BLOCKER [Concomitant]
     Indication: STENT PLACEMENT

REACTIONS (3)
  - Chest pain [Unknown]
  - Arterial restenosis [Unknown]
  - Dyspnoea [Unknown]
